FAERS Safety Report 7375518-2 (Version None)
Quarter: 2011Q1

REPORT INFORMATION
  Report Type: 
  Country: None (occurrence: None)
  Receive Date: 20110325
  Receipt Date: 20110314
  Transmission Date: 20110831
  Serious: Yes (Other)
  Sender: FDA-Public Use
  Company Number: CA-JNJFOC-20110307322

PATIENT
  Sex: Female
  Weight: 62.4 kg

DRUGS (2)
  1. BIAXIN [Concomitant]
     Dosage: PATIENT HAD 4 DAYS OF BIAXIN (CLARITHROMYCIN) JUST PRIOR TO THIS EVENT
  2. REMICADE [Suspect]
     Indication: CROHN'S DISEASE
     Route: 042

REACTIONS (5)
  - NECK PAIN [None]
  - DISORIENTATION [None]
  - INFLUENZA LIKE ILLNESS [None]
  - HYPOTENSION [None]
  - TACHYCARDIA [None]
